FAERS Safety Report 11073766 (Version 1)
Quarter: 2015Q2

REPORT INFORMATION
  Report Type: Spontaneous
  Country: BR (occurrence: BR)
  Receive Date: 20150428
  Receipt Date: 20150428
  Transmission Date: 20150821
  Serious: Yes (Other)
  Sender: FDA-Public Use
  Company Number: PHHY2015BR051220

PATIENT
  Age: 89 Year
  Sex: Female
  Weight: 34 kg

DRUGS (5)
  1. ALOIS [Suspect]
     Active Substance: MEMANTINE
     Indication: DEMENTIA ALZHEIMER^S TYPE
     Dosage: 1 DF, BID (IN THE MORNING AND AT NIGHT)
     Route: 048
  2. DEPURA [Suspect]
     Active Substance: CHOLECALCIFEROL
     Indication: VITAMIN D DECREASED
     Route: 065
  3. CRONOBE [Suspect]
     Active Substance: COBAMAMIDE
     Indication: VITAMIN D DECREASED
     Route: 065
  4. LEPONEX [Suspect]
     Active Substance: CLOZAPINE
     Indication: DEMENTIA ALZHEIMER^S TYPE
     Dosage: 1/4 OF A TABLET, WHEN RELAPSED USED 1/2 TABLET OR 1 TABLET, DAILY
     Route: 048
     Dates: end: 20150423
  5. ALENDRONATE SODIUM. [Suspect]
     Active Substance: ALENDRONATE SODIUM
     Indication: OSTEOPOROSIS
     Dosage: UNK UNK, QW
     Route: 048

REACTIONS (15)
  - Diet refusal [Unknown]
  - Dementia Alzheimer^s type [Recovered/Resolved]
  - Self-injurious ideation [Unknown]
  - Screaming [Unknown]
  - Abnormal behaviour [Unknown]
  - Crying [Unknown]
  - Sedation [Unknown]
  - Off label use [Unknown]
  - Aggression [Unknown]
  - Memory impairment [Unknown]
  - Hallucination, auditory [Unknown]
  - Pain [Unknown]
  - Vitamin D deficiency [Unknown]
  - Abasia [Unknown]
  - Asthenia [Unknown]

NARRATIVE: CASE EVENT DATE: 201410
